FAERS Safety Report 6541550-1 (Version None)
Quarter: 2010Q1

REPORT INFORMATION
  Report Type: 
  Country: None (occurrence: None)
  Receive Date: 20100119
  Receipt Date: 20100108
  Transmission Date: 20100710
  Serious: Yes (Other)
  Sender: FDA-Public Use
  Company Number: JP-ROCHE-652311

PATIENT
  Sex: Female
  Weight: 49 kg

DRUGS (3)
  1. XELODA [Suspect]
     Indication: COLON CANCER METASTATIC
     Dosage: DRUG NAME: XELODA 300, 2 WEEKS ADMINISTRATION FOLLOWED BY 1 WEEK REST
     Route: 048
     Dates: start: 20090605, end: 20090617
  2. XELODA [Suspect]
     Dosage: 2 WEEKS ADMINISTRATION FOLLOWED BY 1 WEEK REST.
     Route: 048
     Dates: start: 20090626, end: 20090709
  3. PYDOXAL [Concomitant]
     Route: 048
     Dates: start: 20090605, end: 20090709

REACTIONS (1)
  - LEUKOENCEPHALOPATHY [None]
